FAERS Safety Report 25586246 (Version 1)
Quarter: 2025Q3

REPORT INFORMATION
  Report Type: Spontaneous
  Country: US (occurrence: None)
  Receive Date: 20250721
  Receipt Date: 20250721
  Transmission Date: 20251021
  Serious: Yes (Other)
  Sender: FDA-CTU
  Company Number: None

PATIENT
  Sex: Female

DRUGS (11)
  1. DIMETHYL FUMARATE [Suspect]
     Active Substance: DIMETHYL FUMARATE
     Dosage: FREQUENCY : TWICE A DAY;?
     Route: 048
     Dates: start: 20250530
  2. ICELEBREX CAP 100MG [Concomitant]
  3. COPAXONE [Concomitant]
     Active Substance: GLATIRAMER ACETATE
  4. FISH OIL CAP 1000MG [Concomitant]
  5. MIRABEGRON TAB 50MG ER [Concomitant]
  6. PREVACID [Concomitant]
     Active Substance: LANSOPRAZOLE
  7. PREVACID CAP 30MG DR [Concomitant]
  8. TAMSULOSIN [Concomitant]
     Active Substance: TAMSULOSIN
  9. TERIFLUNOMI DE [Concomitant]
  10. VITAMIN B TAB COMPLEX [Concomitant]
  11. VITAMIN c TAB 500MG [Concomitant]

REACTIONS (1)
  - Drug hypersensitivity [None]
